FAERS Safety Report 9263686 (Version 1)
Quarter: 2013Q2

REPORT INFORMATION
  Report Type: Spontaneous
  Country: US (occurrence: None)
  Receive Date: 20130429
  Receipt Date: 20130429
  Transmission Date: 20140414
  Serious: Yes (Other)
  Sender: FDA-Public Use
  Company Number: None

PATIENT
  Age: 76 Year
  Sex: Female
  Weight: 63.5 kg

DRUGS (1)
  1. CLONIDINE [Suspect]
     Indication: HYPERTENSION
     Route: 048
     Dates: start: 20120424, end: 20120724

REACTIONS (7)
  - Dyspnoea [None]
  - Myalgia [None]
  - Asthenia [None]
  - Fatigue [None]
  - Gait disturbance [None]
  - Exercise tolerance decreased [None]
  - Anhedonia [None]
